FAERS Safety Report 8076142-9 (Version None)
Quarter: 2012Q1

REPORT INFORMATION
  Report Type: 
  Country: None (occurrence: None)
  Receive Date: 20120127
  Receipt Date: 20111017
  Transmission Date: 20120608
  Serious: No
  Sender: FDA-Public Use
  Company Number: US-GLAXOSMITHKLINE-A0950273A

PATIENT
  Age: 51 Year
  Sex: Male

DRUGS (3)
  1. SOMA [Concomitant]
     Indication: BACK PAIN
     Route: 065
  2. WELLBUTRIN XL [Suspect]
     Indication: DEPRESSION
     Dosage: 150MG PER DAY
     Route: 048
     Dates: start: 20110915, end: 20110918
  3. PERCOCET [Concomitant]
     Indication: BACK PAIN
     Route: 065

REACTIONS (3)
  - MYALGIA [None]
  - EAR DISCOMFORT [None]
  - HEADACHE [None]
